FAERS Safety Report 9871576 (Version 2)
Quarter: 2014Q1

REPORT INFORMATION
  Report Type: Spontaneous
  Country: DE (occurrence: DE)
  Receive Date: 20140205
  Receipt Date: 20140205
  Transmission Date: 20141002
  Serious: Yes (Hospitalization)
  Sender: FDA-Public Use
  Company Number: PHHY2013DE083105

PATIENT
  Sex: Male
  Weight: 83 kg

DRUGS (8)
  1. CERTICAN [Suspect]
     Indication: PROPHYLAXIS AGAINST TRANSPLANT REJECTION
     Dosage: 1.5 MG, BID
  2. CERTICAN [Suspect]
     Dosage: 2.5 MG, UNK
     Dates: start: 20130707
  3. CELLCEPT [Concomitant]
     Indication: PROPHYLAXIS AGAINST TRANSPLANT REJECTION
     Dosage: 1000 MG, UNK
     Route: 048
     Dates: start: 200910
  4. AMLODIPINE [Concomitant]
     Indication: HYPERTENSION
     Dosage: 10 MG, UNK
     Route: 048
     Dates: start: 200910
  5. ATORVASTATIN [Concomitant]
     Indication: LIPIDS ABNORMAL
     Dosage: 10 MG, UNK
     Route: 048
     Dates: start: 201110
  6. L-THYROXIN [Concomitant]
     Indication: HYPOTHYROIDISM
     Dosage: 75 UG, UNK
     Route: 048
     Dates: start: 200910
  7. LISINOPRIL [Concomitant]
     Indication: HYPERTENSION
     Dosage: 10 MG, UNK
     Route: 048
     Dates: start: 200910
  8. MAGNESIUM VERLA                    /00648601/ [Concomitant]
     Indication: HYPOMAGNESAEMIA
     Dosage: SIX TIMES A DAY
     Route: 048
     Dates: start: 200910

REACTIONS (5)
  - Dermatitis atopic [Unknown]
  - Dermatitis [Recovered/Resolved]
  - Swelling [Recovered/Resolved]
  - Skin injury [Recovered/Resolved]
  - Rash [Recovered/Resolved]
